FAERS Safety Report 22044939 (Version 1)
Quarter: 2023Q1

REPORT INFORMATION
  Report Type: Spontaneous
  Country: CA (occurrence: None)
  Receive Date: 20230227
  Receipt Date: 20230227
  Transmission Date: 20230417
  Serious: Yes (Disabling)
  Sender: FDA-Public Use
  Company Number: None

PATIENT
  Sex: Female
  Weight: 63 kg

DRUGS (2)
  1. EFFEXOR XR [Suspect]
     Active Substance: VENLAFAXINE HYDROCHLORIDE
     Indication: Major depression
     Dates: start: 20221013, end: 20221105
  2. VYVANSE [Concomitant]
     Active Substance: LISDEXAMFETAMINE DIMESYLATE

REACTIONS (9)
  - Acne [None]
  - Impaired healing [None]
  - Pain of skin [None]
  - Erythema [None]
  - Skin erosion [None]
  - Skin exfoliation [None]
  - Sensitive skin [None]
  - Scar [None]
  - Scab [None]
